FAERS Safety Report 11119699 (Version 2)
Quarter: 2015Q2

REPORT INFORMATION
  Report Type: Report from Study
  Country: VN (occurrence: VN)
  Receive Date: 20150518
  Receipt Date: 20150609
  Transmission Date: 20150821
  Serious: Yes (Other)
  Sender: FDA-Public Use
  Company Number: PHHY2015VN059264

PATIENT
  Age: 37 Year
  Sex: Female

DRUGS (1)
  1. GLIVEC [Suspect]
     Active Substance: IMATINIB MESYLATE
     Indication: GASTROINTESTINAL STROMAL TUMOUR
     Dosage: 400 MG, QD
     Route: 065
     Dates: start: 20150331, end: 20150427

REACTIONS (9)
  - Second primary malignancy [Unknown]
  - Metastases to spleen [Unknown]
  - Peripheral nerve sheath tumour malignant [Unknown]
  - Malignant neoplasm progression [Not Recovered/Not Resolved]
  - Metastases to lung [Unknown]
  - Metastases to liver [Unknown]
  - No therapeutic response [Unknown]
  - Gastrointestinal stromal tumour [Not Recovered/Not Resolved]
  - Metastases to lymph nodes [Unknown]

NARRATIVE: CASE EVENT DATE: 20150423
